FAERS Safety Report 9477235 (Version 1)
Quarter: 2013Q3

REPORT INFORMATION
  Report Type: Spontaneous
  Country: JP (occurrence: JP)
  Receive Date: 20130826
  Receipt Date: 20130826
  Transmission Date: 20140515
  Serious: Yes (Other)
  Sender: FDA-Public Use
  Company Number: JP-MYLANLABS-2013S1018283

PATIENT
  Age: 7 Decade
  Sex: Female

DRUGS (2)
  1. IGURATIMOD [Suspect]
     Dosage: 25 MG/DAY
     Route: 048
  2. WARFARIN [Interacting]
     Route: 065

REACTIONS (4)
  - Gingival bleeding [Recovered/Resolved]
  - Haemorrhage subcutaneous [Recovered/Resolved]
  - Anaemia [Recovered/Resolved]
  - Drug interaction [Recovered/Resolved]
